FAERS Safety Report 11792826 (Version 1)
Quarter: 2015Q4

REPORT INFORMATION
  Report Type: Spontaneous
  Country: ES (occurrence: None)
  Receive Date: 20151130
  Receipt Date: 20151130
  Transmission Date: 20160305
  Serious: Yes (Other)
  Sender: FDA-Public Use
  Company Number: 2015R1-106691

PATIENT
  Sex: Female

DRUGS (1)
  1. COTRIMOXAZOLE [Suspect]
     Active Substance: SULFAMETHOXAZOLE\TRIMETHOPRIM
     Indication: PROPHYLAXIS

REACTIONS (7)
  - Body temperature increased [None]
  - Tachycardia [None]
  - Hypersensitivity [None]
  - Flushing [None]
  - Vomiting [None]
  - Diarrhoea [None]
  - Cough [None]
